FAERS Safety Report 7237305-5 (Version None)
Quarter: 2011Q1

REPORT INFORMATION
  Report Type: 
  Country: None (occurrence: None)
  Receive Date: 20110121
  Receipt Date: 20110113
  Transmission Date: 20110831
  Serious: No
  Sender: FDA-Public Use
  Company Number: US-ASTRAZENECA-2011SE02446

PATIENT
  Age: 17010 Day
  Sex: Male
  Weight: 105.7 kg

DRUGS (9)
  1. LITHIUM [Concomitant]
     Dosage: 600 MG PO QAM AND 600 MG PO QHS
     Route: 048
     Dates: start: 20030129
  2. LITHOBID [Concomitant]
     Dosage: 300 MG TO 1500 MG
     Dates: start: 20030103
  3. ZOLOFT [Concomitant]
     Dosage: 100 MG TO 150 MG
     Dates: start: 20030103
  4. ASA [Concomitant]
     Dates: start: 20030129
  5. MAVIK [Concomitant]
     Dates: start: 20030213
  6. LIPITOR [Concomitant]
     Dates: start: 20030213
  7. SEROQUEL [Suspect]
     Dosage: 50 MG TO 900 MG
     Route: 048
     Dates: start: 20030129
  8. ZYPREXA [Concomitant]
     Dosage: 10 TO 15 MG
     Dates: start: 20030103
  9. REMERON [Concomitant]
     Dates: start: 20030103

REACTIONS (6)
  - DIABETES MELLITUS INADEQUATE CONTROL [None]
  - HYPERTENSION [None]
  - ANAEMIA [None]
  - VISION BLURRED [None]
  - HYPERLIPIDAEMIA [None]
  - TYPE 2 DIABETES MELLITUS [None]
